FAERS Safety Report 15032268 (Version 11)
Quarter: 2020Q3

REPORT INFORMATION
  Report Type: Spontaneous
  Country: US (occurrence: US)
  Receive Date: 20180619
  Receipt Date: 20200715
  Transmission Date: 20201102
  Serious: Yes (Hospitalization)
  Sender: FDA-Public Use
  Company Number: US-ACTELION-A-NJ2018-173913

PATIENT
  Age: 43 Year
  Sex: Female

DRUGS (3)
  1. VELETRI [Suspect]
     Active Substance: EPOPROSTENOL
     Indication: PULMONARY ARTERIAL HYPERTENSION
     Dosage: 10 NG/KG, PER MIN
     Route: 042
     Dates: start: 20180607
  2. VELETRI [Suspect]
     Active Substance: EPOPROSTENOL
     Dosage: 5 NG/KG, PER MIN
     Route: 042
     Dates: start: 20180505
  3. SILDENAFIL. [Concomitant]
     Active Substance: SILDENAFIL

REACTIONS (24)
  - Catheter management [Recovered/Resolved]
  - Feeling abnormal [Unknown]
  - Vomiting [Unknown]
  - Dyspnoea [Not Recovered/Not Resolved]
  - Device physical property issue [Not Recovered/Not Resolved]
  - Hospitalisation [Unknown]
  - Device dislocation [Recovered/Resolved]
  - Flushing [Unknown]
  - Upper respiratory tract infection [Unknown]
  - Lacrimation increased [Unknown]
  - Vision blurred [Unknown]
  - Dizziness exertional [Unknown]
  - Constipation [Unknown]
  - Photophobia [Unknown]
  - Migraine [Unknown]
  - Arthralgia [Unknown]
  - Nausea [Unknown]
  - Diarrhoea [Unknown]
  - Pain [Unknown]
  - Asthenia [Unknown]
  - Headache [Unknown]
  - Device power source issue [Not Recovered/Not Resolved]
  - Device breakage [Recovered/Resolved]
  - Drug dose omission by device [Recovered/Resolved]

NARRATIVE: CASE EVENT DATE: 20180608
